FAERS Safety Report 6211725-X (Version None)
Quarter: 2009Q2

REPORT INFORMATION
  Report Type: 
  Country: None (occurrence: None)
  Receive Date: 20090602
  Receipt Date: 20090520
  Transmission Date: 20091009
  Serious: Yes (Other)
  Sender: FDA-Public Use
  Company Number: CN-PFIZER INC-2009216489

PATIENT
  Age: 28 Year

DRUGS (3)
  1. MEDROL [Suspect]
     Indication: NEPHROTIC SYNDROME
     Dosage: 40 MG, 1X/DAY
     Route: 048
     Dates: start: 20081101
  2. MEDROL [Suspect]
     Route: 048
  3. LEFLUNOMIDE [Suspect]
     Indication: NEPHROTIC SYNDROME
     Dosage: 20 MG, 1X/DAY
     Route: 048
     Dates: start: 20090101, end: 20090101

REACTIONS (2)
  - PNEUMONIA [None]
  - PULMONARY FIBROSIS [None]
